FAERS Safety Report 8426757-0 (Version None)
Quarter: 2012Q2

REPORT INFORMATION
  Report Type: 
  Country: None (occurrence: None)
  Receive Date: 20120611
  Receipt Date: 20120605
  Transmission Date: 20120825
  Serious: Yes (Life-Threatening, Hospitalization, Disabling, Other)
  Sender: FDA-Public Use
  Company Number: PHHY2012IT013802

PATIENT
  Age: 80 Year
  Sex: Female

DRUGS (15)
  1. TASIGNA [Suspect]
     Indication: CHRONIC MYELOID LEUKAEMIA
     Dosage: 600 MG, UNK
     Route: 048
     Dates: start: 20120125, end: 20120126
  2. BISOPROLOL FUMARATE [Concomitant]
     Dosage: 1 DF, DAILY
  3. ASPIRIN [Concomitant]
     Dosage: 1 DF, DAILY
  4. ALLOPURINOL [Concomitant]
     Dosage: 1 DF, DAILY
  5. ARANESP [Concomitant]
     Dosage: 1 VIAL PER WEEK
  6. SINTROM [Concomitant]
  7. OMEPRAZOLE [Concomitant]
     Dosage: 20 MG, DAILY
     Route: 048
  8. RAMIPRIL [Concomitant]
     Dosage: 2 DF, DAILY
  9. ORAL ANTIDIABETICS [Concomitant]
  10. LASIX [Concomitant]
     Dosage: 2 DF, DAILY
  11. REPAGLINIDE [Concomitant]
     Dosage: 1 DF, TID
  12. ROCALTROL [Concomitant]
     Dosage: 1 DF, UNK
  13. FOLINA [Concomitant]
     Dosage: 1 DF, DAILY
  14. FUROSEMIDE [Concomitant]
     Dosage: 2 DF, DAILY
  15. GLUCOBAY [Concomitant]
     Dosage: 1 DF, DAILY

REACTIONS (9)
  - NECK PAIN [None]
  - HAEMOGLOBIN DECREASED [None]
  - ACUTE MYOCARDIAL INFARCTION [None]
  - TROPONIN I INCREASED [None]
  - SYSTOLIC DYSFUNCTION [None]
  - CHEST PAIN [None]
  - HYPERGLYCAEMIA [None]
  - LEUKOCYTOSIS [None]
  - DYSPNOEA [None]
